FAERS Safety Report 10262460 (Version 1)
Quarter: 2014Q2

REPORT INFORMATION
  Report Type: Report from Study
  Country: US (occurrence: US)
  Receive Date: 20140626
  Receipt Date: 20140626
  Transmission Date: 20141212
  Serious: Yes (Hospitalization, Other)
  Sender: FDA-Public Use
  Company Number: US-ABBVIE-14P-163-1248981-00

PATIENT
  Age: 57 Year
  Sex: Female
  Weight: 68.1 kg

DRUGS (5)
  1. HUMIRA [Suspect]
     Indication: RHEUMATOID ARTHRITIS
     Dates: start: 2012, end: 201401
  2. HUMIRA [Suspect]
     Dosage: ONE DOSE SO FAR
     Dates: start: 201406
  3. ESTROGEN [Concomitant]
     Indication: HORMONE REPLACEMENT THERAPY
  4. UNNAMED ANTI-INFLAMMATORY MEDICATION [Concomitant]
     Indication: RHEUMATOID ARTHRITIS
  5. UNNAMED MEDICATION [Concomitant]
     Indication: DEPRESSION

REACTIONS (6)
  - Gait disturbance [Not Recovered/Not Resolved]
  - Road traffic accident [Recovered/Resolved]
  - Neck injury [Recovered/Resolved]
  - Back injury [Not Recovered/Not Resolved]
  - Bronchitis [Recovered/Resolved]
  - Upper respiratory tract infection [Recovered/Resolved]
